FAERS Safety Report 8148544-3 (Version None)
Quarter: 2012Q1

REPORT INFORMATION
  Report Type: 
  Country: None (occurrence: None)
  Receive Date: 20120218
  Receipt Date: 20110616
  Transmission Date: 20120608
  Serious: No
  Sender: FDA-Public Use
  Company Number: US-ALLERGAN-1108173US

PATIENT
  Age: 24 Year
  Sex: Female

DRUGS (5)
  1. CIPROFLOXACIN [Concomitant]
  2. BOTULINUM TOXIN TYPE A [Suspect]
     Dosage: 200 UNK, UNK
     Dates: start: 20110201, end: 20110201
  3. TRAZODONE HYDROCHLORIDE [Concomitant]
  4. BOTULINUM TOXIN TYPE A [Suspect]
     Indication: NEUROGENIC BLADDER
     Dosage: 300 UNITS, SINGLE
     Route: 043
     Dates: start: 20110520, end: 20110520
  5. ZOLOFT [Concomitant]

REACTIONS (1)
  - ASTHENIA [None]
